FAERS Safety Report 23011794 (Version 3)
Quarter: 2024Q1

REPORT INFORMATION
  Report Type: Report from Study
  Country: EG (occurrence: EG)
  Receive Date: 20230929
  Receipt Date: 20240315
  Transmission Date: 20240410
  Serious: Yes (Other)
  Sender: FDA-Public Use
  Company Number: EG-SANDOZ-SDZ2023EG003294

PATIENT
  Sex: Female
  Weight: 44 kg

DRUGS (12)
  1. HYRIMOZ [Suspect]
     Active Substance: ADALIMUMAB-ADAZ
     Indication: Ankylosing spondylitis
     Dosage: 40 MG EVERY OTHER WEEK,1 SYRINGE
     Route: 058
     Dates: start: 20230623
  2. HYRIMOZ [Suspect]
     Active Substance: ADALIMUMAB-ADAZ
     Indication: Autoimmune myositis
  3. ARCOXIA [Concomitant]
     Active Substance: ETORICOXIB
     Indication: Product used for unknown indication
     Dosage: UNK
     Route: 048
  4. CELLCEPT [Concomitant]
     Active Substance: MYCOPHENOLATE MOFETIL
     Indication: Immunosuppressant drug level
     Dosage: 2000 IU, QD
     Route: 048
     Dates: start: 202106
  5. LUSTRAL [Concomitant]
     Active Substance: SERTRALINE HYDROCHLORIDE
     Indication: Panic attack
     Dosage: ONE TABLET AT  THE MORNING  DAY AFTER DAY
     Route: 048
     Dates: start: 202304
  6. MAGNESIUM [Concomitant]
     Active Substance: MAGNESIUM
     Indication: Supplementation therapy
     Dosage: ONE TABLET, QD
     Route: 048
     Dates: start: 202106
  7. MAGNESIUM [Concomitant]
     Active Substance: MAGNESIUM
     Indication: Muscle spasms
  8. OSTEOCARE [Concomitant]
     Active Substance: CALCIUM\CHOLECALCIFEROL\MAGNESIUM\ZINC
     Indication: Supplementation therapy
     Dosage: TWO TABLETS, QD
     Route: 048
     Dates: start: 202106
  9. PLAQUENIL [Concomitant]
     Active Substance: HYDROXYCHLOROQUINE SULFATE
     Indication: Product used for unknown indication
     Dosage: UNK
     Route: 048
  10. Solupred [Concomitant]
     Indication: Immunosuppressant drug therapy
     Dosage: THE REPORTER STATED THAT THE PATIENT START  DOSE WITH 20  THEN SHE  REDUCED TO 0.5  (JAN/2023) THEN
     Route: 048
     Dates: start: 202301
  11. STEROGYL [Concomitant]
     Active Substance: ERGOCALCIFEROL
     Indication: Vitamin supplementation
     Dosage: ONE AMPULE ONCE PER MONTH OR EVERY  2 OR 3 MONTHS (WHEN NEEDED)
     Route: 030
  12. TRENTAL [Concomitant]
     Active Substance: PENTOXIFYLLINE
     Indication: Polymyositis
     Dosage: 400/DAY
     Route: 048
     Dates: start: 202106

REACTIONS (21)
  - Vision blurred [Recovered/Resolved]
  - Hypoacusis [Recovered/Resolved]
  - Feeling cold [Recovered/Resolved]
  - General physical health deterioration [Not Recovered/Not Resolved]
  - Morphoea [Not Recovered/Not Resolved]
  - Product dose omission issue [Unknown]
  - Off label use [Unknown]
  - Injection site pain [Recovered/Resolved]
  - Dizziness [Recovered/Resolved]
  - Drug ineffective [Not Recovered/Not Resolved]
  - Abnormal loss of weight [Unknown]
  - Disease complication [Unknown]
  - White blood cell count decreased [Unknown]
  - Tinnitus [Recovered/Resolved]
  - Muscle spasms [Not Recovered/Not Resolved]
  - Chest pain [Not Recovered/Not Resolved]
  - Dyspnoea [Unknown]
  - Swelling [Not Recovered/Not Resolved]
  - Pallor [Not Recovered/Not Resolved]
  - Burning sensation [Not Recovered/Not Resolved]
  - Arthralgia [Not Recovered/Not Resolved]

NARRATIVE: CASE EVENT DATE: 20230101
